FAERS Safety Report 7926670-9 (Version None)
Quarter: 2011Q4

REPORT INFORMATION
  Report Type: 
  Country: None (occurrence: None)
  Receive Date: 20111116
  Receipt Date: 20111109
  Transmission Date: 20120403
  Serious: Yes (Other)
  Sender: FDA-Public Use
  Company Number: AUR-APL-2011-00849

PATIENT
  Age: 60 Year
  Sex: Male
  Weight: 83.9 kg

DRUGS (4)
  1. ALTACE [Suspect]
     Indication: BLOOD PRESSURE ABNORMAL
     Dosage: 10 MG (10 MG, 1 IN 1 D), ORAL
     Route: 048
     Dates: start: 20100101
  2. LISINOPRIL [Suspect]
     Indication: BLOOD PRESSURE ABNORMAL
     Dosage: 10 MG (10 MG, 1 IN 1 D)
     Dates: start: 20090901
  3. LIPITOR [Suspect]
     Indication: BLOOD CHOLESTEROL ABNORMAL
     Dosage: 10 MG (10 MG, 1 IN 1 D)
     Dates: start: 20060101, end: 20101001
  4. SIMVASTATIN [Suspect]
     Indication: BLOOD CHOLESTEROL ABNORMAL
     Dosage: 10 MG (10 MG, 1 IN 1 D)
     Dates: start: 20081001, end: 20100101

REACTIONS (5)
  - BLOOD URINE PRESENT [None]
  - THINKING ABNORMAL [None]
  - HAEMATOCHEZIA [None]
  - MYALGIA [None]
  - DRUG INEFFECTIVE [None]
